FAERS Safety Report 21336158 (Version 1)
Quarter: 2022Q3

REPORT INFORMATION
  Report Type: Spontaneous
  Country: US (occurrence: None)
  Receive Date: 20220915
  Receipt Date: 20220915
  Transmission Date: 20221027
  Serious: No
  Sender: FDA-Public Use
  Company Number: US-Unichem Pharmaceuticals (USA) Inc-UCM202203-000240

PATIENT
  Age: 76 Year
  Sex: Female
  Weight: 77.11 kg

DRUGS (6)
  1. CLONIDINE HYDROCHLORIDE [Suspect]
     Active Substance: CLONIDINE HYDROCHLORIDE
     Indication: Blood pressure measurement
     Dosage: 0.3 MG THREE TIMES A DAY (0.2 MG AND 0.1 MG CLONIDINE)
     Dates: start: 20220225
  2. CLONIDINE HYDROCHLORIDE [Suspect]
     Active Substance: CLONIDINE HYDROCHLORIDE
     Dosage: 0.3 MG THREE TIMES A DAY (0.2 MG AND 0.1 MG CLONIDINE)
     Dates: start: 20220225
  3. MULTAQ [Concomitant]
     Active Substance: DRONEDARONE
     Indication: Product used for unknown indication
     Dates: start: 2011
  4. SPIRONOLACTONE [Concomitant]
     Active Substance: SPIRONOLACTONE
     Indication: Product used for unknown indication
  5. VITAMIN C [Concomitant]
     Active Substance: ASCORBIC ACID
     Indication: Product used for unknown indication
     Dosage: UNKNOWN
  6. VITAMIN D [Concomitant]
     Active Substance: VITAMIN D NOS
     Indication: Product used for unknown indication
     Dosage: UNKNOWN

REACTIONS (3)
  - Hypertension [Unknown]
  - Hot flush [Unknown]
  - Drug ineffective [Unknown]
